FAERS Safety Report 25795625 (Version 3)
Quarter: 2025Q4

REPORT INFORMATION
  Report Type: Spontaneous
  Country: JP (occurrence: JP)
  Receive Date: 20250912
  Receipt Date: 20251014
  Transmission Date: 20260118
  Serious: Yes (Hospitalization)
  Sender: ASTELLAS
  Company Number: JP-ASTELLAS-2025-AER-032040

PATIENT
  Age: 80 Year
  Sex: Male
  Weight: 53 kg

DRUGS (7)
  1. PADCEV [Suspect]
     Active Substance: ENFORTUMAB VEDOTIN-EJFV
     Indication: Malignant neoplasm of renal pelvis
     Dosage: ADMINISTERED ONCE A WEEK FOR THREE CONSECUTIVE WEEKS, AND DISCONTINUED AT THE FOURTH WEEK
     Route: 042
     Dates: start: 20250526
  2. PADCEV [Suspect]
     Active Substance: ENFORTUMAB VEDOTIN-EJFV
     Indication: Ureteric cancer
  3. KEYTRUDA [Concomitant]
     Active Substance: PEMBROLIZUMAB
     Indication: Product used for unknown indication
     Route: 065
     Dates: start: 20240514
  4. Takecab tablet [Concomitant]
     Indication: Prophylaxis against gastrointestinal ulcer
     Route: 048
     Dates: start: 20240226, end: 20250831
  5. Tramcet tablet [Concomitant]
     Indication: Cancer pain
     Route: 048
     Dates: start: 20240514, end: 20250831
  6. Denotas chewable tablet [Concomitant]
     Indication: Hypocalcaemia
     Route: 048
     Dates: start: 20240520, end: 20250801
  7. Ranmark injection [Concomitant]
     Indication: Metastases to bone
     Route: 058
     Dates: start: 20240520, end: 20250707

REACTIONS (2)
  - Interstitial lung disease [Recovered/Resolved]
  - Drug eruption [Recovered/Resolved]

NARRATIVE: CASE EVENT DATE: 20250529
